FAERS Safety Report 8848122 (Version 2)
Quarter: 2012Q4

REPORT INFORMATION
  Report Type: Report from Study
  Country: US (occurrence: US)
  Receive Date: 20121018
  Receipt Date: 20121106
  Transmission Date: 20130627
  Serious: Yes (Other)
  Sender: FDA-Public Use
  Company Number: US-VERTEX PHARMACEUTICAL INC.-2012-022187

PATIENT
  Sex: Male

DRUGS (4)
  1. TELAPREVIR [Suspect]
     Indication: HEPATITIS C
     Dosage: 750 mg, tid
     Route: 048
     Dates: start: 20120904
  2. PEGASYS [Suspect]
     Indication: HEPATITIS C
     Dosage: 180 ?g,weekly
     Route: 058
     Dates: start: 20120810
  3. RIBAVIRIN [Suspect]
     Indication: HEPATITIS C
     Dosage: 200 mg, qd
     Route: 048
     Dates: start: 20120810
  4. RIBAVIRIN [Suspect]
     Dosage: 200 mg, bid
     Route: 048
     Dates: start: 20120824

REACTIONS (2)
  - Red blood cell count decreased [Unknown]
  - Off label use [Unknown]
